FAERS Safety Report 10401098 (Version 2)
Quarter: 2014Q3

REPORT INFORMATION
  Report Type: Spontaneous
  Country: ES (occurrence: ES)
  Receive Date: 20140822
  Receipt Date: 20140822
  Transmission Date: 20150326
  Serious: Yes (Death, Hospitalization)
  Sender: FDA-Public Use
  Company Number: ES-ACCORD-025451

PATIENT
  Age: 71 Year
  Sex: Female

DRUGS (10)
  1. MANIDIPINE/MANIDIPINE HYDROCHLORIDE [Concomitant]
  2. DOXAZOSIN [Concomitant]
     Active Substance: DOXAZOSIN\DOXAZOSIN MESYLATE
  3. PARICALCITOL. [Concomitant]
     Active Substance: PARICALCITOL
  4. INSULIN [Concomitant]
     Active Substance: INSULIN NOS
  5. BISOPROLOL [Concomitant]
     Active Substance: BISOPROLOL
  6. ALLOPURINOL/ALLOPURINOL SODIUM [Suspect]
     Active Substance: ALLOPURINOL SODIUM
     Indication: HYPERURICAEMIA
  7. ESOMEPRAZOLE/ESOMEPRAZOLE MAGNESIUM/ESOMEPRAZOLE SODIUM [Concomitant]
     Active Substance: ESOMEPRAZOLE\ESOMEPRAZOLE MAGNESIUM\ESOMEPRAZOLE SODIUM
  8. FUROSEMIDE. [Concomitant]
     Active Substance: FUROSEMIDE
  9. CALCIUM POLYSTYRENE SULFONATE [Concomitant]
     Active Substance: CALCIUM POLYSTYRENE SULFONATE
  10. ATORVASTATIN [Concomitant]
     Active Substance: ATORVASTATIN

REACTIONS (8)
  - Pancytopenia [Unknown]
  - Renal failure [Unknown]
  - Shock [Unknown]
  - Multi-organ failure [Fatal]
  - Toxic epidermal necrolysis [Unknown]
  - Dialysis [None]
  - Inflammatory marker increased [Unknown]
  - Respiratory failure [Unknown]
